FAERS Safety Report 10676496 (Version 1)
Quarter: 2014Q4

REPORT INFORMATION
  Report Type: Spontaneous
  Country: US (occurrence: None)
  Receive Date: 20141223
  Receipt Date: 20141223
  Transmission Date: 20150529
  Serious: Yes (Other)
  Sender: FDA-Public Use
  Company Number: None

PATIENT
  Age: 25 Year
  Sex: Female
  Weight: 81.65 kg

DRUGS (1)
  1. PAXIL [Suspect]
     Active Substance: PAROXETINE HYDROCHLORIDE
     Indication: ANXIETY
     Dosage: 1 ONCE DAILY TAKEN BY MOUTH
     Route: 048
     Dates: start: 20141001, end: 20141002

REACTIONS (15)
  - Tremor [None]
  - Muscle twitching [None]
  - Coordination abnormal [None]
  - Tic [None]
  - Somnolence [None]
  - Insomnia [None]
  - Impaired work ability [None]
  - Disturbance in attention [None]
  - Hyperhidrosis [None]
  - Restlessness [None]
  - Apathy [None]
  - Photophobia [None]
  - Feeling hot [None]
  - Mydriasis [None]
  - Early satiety [None]

NARRATIVE: CASE EVENT DATE: 20141001
